FAERS Safety Report 4462874-8 (Version None)
Quarter: 2004Q3

REPORT INFORMATION
  Report Type: 
  Country: None (occurrence: None)
  Receive Date: 20040930
  Receipt Date: 20040921
  Transmission Date: 20050211
  Serious: Yes (Death)
  Sender: FDA-Public Use
  Company Number: 200417193US

PATIENT
  Age: 63 Year
  Sex: Male
  Weight: 80 kg

DRUGS (5)
  1. TAXOTERE [Suspect]
     Indication: NON-SMALL CELL LUNG CANCER
     Dosage: DOSE: 75 MG/M2 OVER 60 MINUTES, DAY 1, EVERY 21 DAYS X 3
     Route: 042
     Dates: start: 20040213, end: 20040326
  2. DEXAMETHASONE [Suspect]
     Indication: NON-SMALL CELL LUNG CANCER
     Dosage: DOSE: 8 MG BID, DAYS 0-2, EVERY 21 DAYS X 3
     Route: 048
     Dates: start: 20040213
  3. CISPLATIN [Suspect]
     Indication: NON-SMALL CELL LUNG CANCER
     Dosage: DOSE: UNK
  4. ETOPOSIDE [Suspect]
     Indication: NON-SMALL CELL LUNG CANCER
     Dosage: DOSE: UNK
  5. RADIOTHERAPY [Concomitant]
     Indication: NON-SMALL CELL LUNG CANCER
     Dosage: DOSE: UNK

REACTIONS (2)
  - LUNG INFILTRATION [None]
  - PNEUMONITIS [None]
